FAERS Safety Report 5264288-X (Version None)
Quarter: 2007Q1

REPORT INFORMATION
  Report Type: 
  Country: None (occurrence: None)
  Receive Date: 20061213
  Receipt Date: 20050510
  Transmission Date: 20070707
  Serious: Yes (Other)
  Sender: FDA-Public Use
  Company Number: 2005UW07258

PATIENT
  Age: 76 Year
  Sex: Female
  Weight: 63.502 kg

DRUGS (3)
  1. IRESSA [Suspect]
     Dosage: 250 QD PO
     Route: 048
     Dates: start: 20040901
  2. SULAR [Concomitant]
  3. VASOTEC [Concomitant]

REACTIONS (1)
  - ALOPECIA [None]
